FAERS Safety Report 5252883-3 (Version None)
Quarter: 2007Q1

REPORT INFORMATION
  Report Type: 
  Country: None (occurrence: None)
  Receive Date: 20070227
  Receipt Date: 20070220
  Transmission Date: 20070707
  Serious: Yes (Other)
  Sender: FDA-Public Use
  Company Number: CAP07000029

PATIENT
  Age: 58 Year
  Sex: Female
  Weight: 72.6 kg

DRUGS (7)
  1. ACTONEL [Suspect]
     Indication: OSTEOPOROSIS
     Dosage: 35 MG ONCE WEEKLY, ORAL
     Route: 048
     Dates: start: 20030101, end: 20070101
  2. CELEBREX [Concomitant]
  3. AVAPRO [Concomitant]
  4. ESTRACE [Concomitant]
  5. NEXIUM /01479302/ (ESOMEPRAZOLE MAGNESIUM) [Concomitant]
  6. APO-PAROXETINE (PAROXETINE HYDROCHLORIDE) [Concomitant]
  7. LECTOPAM (BROMAZEPAM) [Concomitant]

REACTIONS (4)
  - ARTHRALGIA [None]
  - BLOOD PRESSURE INCREASED [None]
  - PHOTOPSIA [None]
  - RETINAL DETACHMENT [None]
